FAERS Safety Report 5493328-8 (Version None)
Quarter: 2007Q4

REPORT INFORMATION
  Report Type: 
  Country: None (occurrence: None)
  Receive Date: 20071023
  Receipt Date: 20070615
  Transmission Date: 20080405
  Serious: No
  Sender: FDA-Public Use
  Company Number: US-BRISTOL-MYERS SQUIBB COMPANY-13816251

PATIENT
  Sex: Female
  Weight: 52 kg

DRUGS (1)
  1. KENALOG-40 [Suspect]
     Indication: MULTIPLE ALLERGIES
     Route: 030
     Dates: start: 20070414

REACTIONS (2)
  - INJECTION SITE ATROPHY [None]
  - PAIN IN EXTREMITY [None]
